FAERS Safety Report 16140146 (Version 1)
Quarter: 2019Q1

REPORT INFORMATION
  Report Type: Spontaneous
  Country: US (occurrence: US)
  Receive Date: 20190331
  Receipt Date: 20190331
  Transmission Date: 20190418
  Serious: No
  Sender: FDA-Public Use
  Company Number: US-JNJFOC-20190235256

PATIENT
  Sex: Female
  Weight: 72.57 kg

DRUGS (4)
  1. HYDROMORPHONE HCL [Suspect]
     Active Substance: HYDROMORPHONE HYDROCHLORIDE
     Indication: PAIN
     Route: 065
     Dates: start: 20170928, end: 20171001
  2. CELEBREX [Concomitant]
     Active Substance: CELECOXIB
     Indication: KNEE OPERATION
     Route: 048
     Dates: start: 20170928
  3. XARELTO [Suspect]
     Active Substance: RIVAROXABAN
     Indication: THROMBOSIS
     Route: 048
     Dates: start: 20170928
  4. FAMOTIDINE. [Concomitant]
     Active Substance: FAMOTIDINE
     Route: 048
     Dates: start: 20170928

REACTIONS (4)
  - Nausea [Unknown]
  - Product dose omission [Unknown]
  - Headache [Unknown]
  - Vomiting [Unknown]
